FAERS Safety Report 12340370 (Version 2)
Quarter: 2016Q2

REPORT INFORMATION
  Report Type: Spontaneous
  Country: US (occurrence: US)
  Receive Date: 20160506
  Receipt Date: 20160523
  Transmission Date: 20160815
  Serious: No
  Sender: FDA-Public Use
  Company Number: US-BRISTOL-MYERS SQUIBB COMPANY-BMS-2016-035867

PATIENT
  Sex: Female
  Weight: 95.24 kg

DRUGS (1)
  1. SPRYCEL [Suspect]
     Active Substance: DASATINIB
     Indication: MYELOID LEUKAEMIA
     Dosage: 100 MG, QD
     Route: 065
     Dates: start: 20160421

REACTIONS (6)
  - Nausea [Unknown]
  - Diarrhoea [Unknown]
  - Blood potassium increased [Unknown]
  - Vomiting [Unknown]
  - Dyspnoea [Unknown]
  - Weight decreased [Unknown]
